FAERS Safety Report 7943077-9 (Version None)
Quarter: 2011Q4

REPORT INFORMATION
  Report Type: 
  Country: None (occurrence: None)
  Receive Date: 20111128
  Receipt Date: 20111117
  Transmission Date: 20120403
  Serious: Yes (Hospitalization)
  Sender: FDA-Public Use
  Company Number: US-CUBIST-2011S1000805

PATIENT

DRUGS (4)
  1. CUBICIN [Suspect]
     Indication: CELLULITIS
     Route: 065
  2. CUBICIN [Suspect]
     Indication: ABSCESS
     Route: 065
  3. CUBICIN [Suspect]
     Route: 065
  4. CUBICIN [Suspect]
     Route: 065

REACTIONS (2)
  - ANTIMICROBIAL SUSCEPTIBILITY TEST RESISTANT [None]
  - ULCER [None]
